FAERS Safety Report 9115443 (Version 1)
Quarter: 2013Q1

REPORT INFORMATION
  Report Type: Spontaneous
  Country: US (occurrence: None)
  Receive Date: 20130221
  Receipt Date: 20130221
  Transmission Date: 20140127
  Serious: Yes (Hospitalization)
  Sender: FDA-Public Use
  Company Number: None

PATIENT
  Age: 56 Year
  Sex: Male
  Weight: 88.5 kg

DRUGS (2)
  1. HYDROXYCHLOROQUINE 200MG TABS [Suspect]
     Indication: RENAL CANCER METASTATIC
     Dosage: 200MG TABLETS-600MG DOSE, BID, 047 ROUTE
     Dates: start: 20130122, end: 20130216
  2. ALDESLEUKIN 600,000 INTERNATIONAL UNITS/KG/DOSE [Suspect]
     Indication: RENAL CANCER METASTATIC
     Dosage: 600,000 INTERNATIONAL UNITS/KG/DOSE EVERY 8 HOURS 041ROUTE
     Dates: start: 20130205, end: 20130208

REACTIONS (1)
  - Pancreatitis acute [None]
